FAERS Safety Report 11658895 (Version 2)
Quarter: 2015Q4

REPORT INFORMATION
  Report Type: Spontaneous
  Country: JP (occurrence: JP)
  Receive Date: 20151026
  Receipt Date: 20151028
  Transmission Date: 20160304
  Serious: Yes (Other)
  Sender: FDA-Public Use
  Company Number: PHJP2015JP018390

PATIENT
  Age: 73 Year
  Sex: Female

DRUGS (1)
  1. AMN107 [Suspect]
     Active Substance: NILOTINIB
     Indication: CHRONIC MYELOID LEUKAEMIA
     Dosage: 600 MG, QD
     Route: 048
     Dates: start: 201409

REACTIONS (4)
  - Pulmonary embolism [Unknown]
  - Drug intolerance [Unknown]
  - Neutropenia [Unknown]
  - Drug resistance [Unknown]
